FAERS Safety Report 17607438 (Version 3)
Quarter: 2020Q3

REPORT INFORMATION
  Report Type: Spontaneous
  Country: FR (occurrence: FR)
  Receive Date: 20200331
  Receipt Date: 20200810
  Transmission Date: 20201102
  Serious: Yes (Hospitalization, Other)
  Sender: FDA-Public Use
  Company Number: FR-AMGEN-FRASP2020048404

PATIENT
  Age: 62 Year
  Sex: Male

DRUGS (6)
  1. ARANESP [Suspect]
     Active Substance: DARBEPOETIN ALFA
     Dosage: 500 MICROGRAM, QWK
     Route: 065
  2. HYDROXYUREA. [Concomitant]
     Active Substance: HYDROXYUREA
     Dosage: 500 MILLIGRAM, QD
     Dates: start: 2001, end: 201604
  3. HYDROXYUREA. [Concomitant]
     Active Substance: HYDROXYUREA
     Dosage: 1500?500 MILLIGRAM, QOD
  4. ARANESP [Suspect]
     Active Substance: DARBEPOETIN ALFA
     Indication: ANAEMIA
     Dosage: 50 MICROGRAM, QWK
     Route: 065
  5. AZACITIDINE. [Concomitant]
     Active Substance: AZACITIDINE
     Indication: SICKLE CELL DISEASE
     Dosage: (40 MG/M2) DAILY FOR 7 DAYS EVERY 4 WEEKS
     Dates: start: 201608
  6. AZACITIDINE. [Concomitant]
     Active Substance: AZACITIDINE
     Dosage: 75 MG/M2 DAILY FOR 7 DAYS

REACTIONS (3)
  - Myelodysplastic syndrome transformation [Unknown]
  - Therapy non-responder [Unknown]
  - Sickle cell anaemia with crisis [Unknown]

NARRATIVE: CASE EVENT DATE: 201605
